FAERS Safety Report 18098388 (Version 1)
Quarter: 2020Q3

REPORT INFORMATION
  Report Type: Spontaneous
  Country: US (occurrence: US)
  Receive Date: 20200730
  Receipt Date: 20200730
  Transmission Date: 20201103
  Serious: No
  Sender: FDA-Public Use
  Company Number: None

PATIENT
  Sex: Male

DRUGS (1)
  1. VIGABATRIN POWDER [Suspect]
     Active Substance: VIGABATRIN
     Route: 048
     Dates: start: 20200630

REACTIONS (2)
  - Seizure [None]
  - Product substitution issue [None]
